FAERS Safety Report 8292799 (Version 16)
Quarter: 2013Q2

REPORT INFORMATION
  Report Type: Report from Study
  Country: DE (occurrence: DE)
  Receive Date: 20111215
  Receipt Date: 20130409
  Transmission Date: 20140414
  Serious: Yes (Hospitalization)
  Sender: FDA-Public Use
  Company Number: DE-ROCHE-1021276

PATIENT
  Age: 52 Year
  Sex: Male
  Weight: 59.5 kg

DRUGS (18)
  1. VEMURAFENIB [Suspect]
     Indication: METASTATIC MALIGNANT MELANOMA
     Route: 048
     Dates: start: 20111121, end: 20111208
  2. VEMURAFENIB [Suspect]
     Dosage: LAST DOSE PRIOR TO SAE 01 JAN 2012
     Route: 048
     Dates: start: 20111215, end: 20120102
  3. VEMURAFENIB [Suspect]
     Dosage: LAST DOSE PRIOR TO AES: 08/DEC/2011
     Route: 048
     Dates: start: 20110701, end: 20111210
  4. VEMURAFENIB [Suspect]
     Route: 048
     Dates: start: 20111213
  5. FORTECORTIN [Concomitant]
     Route: 065
     Dates: start: 20110801
  6. TOREM [Concomitant]
     Route: 065
     Dates: start: 2011
  7. PANTAZOL [Concomitant]
     Route: 065
     Dates: start: 2010
  8. PANTAZOL [Concomitant]
     Route: 065
     Dates: start: 20111024
  9. KEPPRA [Concomitant]
     Route: 065
     Dates: start: 20111028
  10. KEPPRA [Concomitant]
     Route: 065
     Dates: start: 20111028
  11. LORAZEPAM [Concomitant]
     Route: 065
     Dates: start: 2011
  12. PAROXETINE [Concomitant]
     Route: 065
     Dates: start: 201106, end: 20111024
  13. METOCLOPRAMID [Concomitant]
     Route: 065
     Dates: start: 2011, end: 20111024
  14. TAVOR EXPIDET [Concomitant]
     Route: 065
     Dates: start: 2011
  15. MST [Concomitant]
     Route: 065
     Dates: start: 20110729, end: 20111024
  16. NOVALGIN [Concomitant]
     Route: 065
     Dates: start: 20110829, end: 20111024
  17. AMPHOMORONAL [Concomitant]
     Route: 065
     Dates: start: 20111024
  18. AMPHOMORONAL [Concomitant]
     Route: 065
     Dates: start: 20111024

REACTIONS (3)
  - Erysipelas [Recovered/Resolved]
  - Cellulitis [Recovered/Resolved]
  - Cellulitis [Recovered/Resolved]
